FAERS Safety Report 13390941 (Version 1)
Quarter: 2017Q1

REPORT INFORMATION
  Report Type: Spontaneous
  Country: GB (occurrence: GB)
  Receive Date: 20170331
  Receipt Date: 20170331
  Transmission Date: 20170429
  Serious: Yes (Hospitalization)
  Sender: FDA-Public Use
  Company Number: GB-TEVA-753792ACC

PATIENT
  Age: 64 Year
  Sex: Female
  Weight: 66.67 kg

DRUGS (2)
  1. AVELOX [Suspect]
     Active Substance: MOXIFLOXACIN HYDROCHLORIDE
     Indication: HIP SURGERY
     Dosage: WITHDRAWN BETWEEN 25/12/15 AND 14/01/2016.
     Dates: start: 201512
  2. MOXIFLOXACIN. [Suspect]
     Active Substance: MOXIFLOXACIN
     Indication: HIP SURGERY
     Dosage: STARTED BETWEEN 25/12/15 AND 14/01/16.
     Dates: end: 20160114

REACTIONS (6)
  - Blindness [Not Recovered/Not Resolved]
  - Muscular weakness [Not Recovered/Not Resolved]
  - Oedema peripheral [Not Recovered/Not Resolved]
  - Heart rate abnormal [Not Recovered/Not Resolved]
  - Headache [Not Recovered/Not Resolved]
  - Tinnitus [Not Recovered/Not Resolved]
